FAERS Safety Report 17274003 (Version 3)
Quarter: 2020Q1

REPORT INFORMATION
  Report Type: Report from Study
  Country: US (occurrence: US)
  Receive Date: 20200115
  Receipt Date: 20200203
  Transmission Date: 20200409
  Serious: Yes (Death, Hospitalization)
  Sender: FDA-Public Use
  Company Number: US-ACTELION-A-US2020-200589

PATIENT
  Sex: Male
  Weight: 61.68 kg

DRUGS (2)
  1. UPTRAVI [Suspect]
     Active Substance: SELEXIPAG
     Indication: PULMONARY ARTERIAL HYPERTENSION
     Dosage: 1000 MCG, BID
     Route: 048
  2. OFEV [Concomitant]
     Active Substance: NINTEDANIB

REACTIONS (3)
  - Hospitalisation [Not Recovered/Not Resolved]
  - Pulmonary hypertension [Fatal]
  - Malaise [Unknown]
